FAERS Safety Report 23830760 (Version 1)
Quarter: 2024Q2

REPORT INFORMATION
  Report Type: Spontaneous
  Country: CA (occurrence: CA)
  Receive Date: 20240508
  Receipt Date: 20240508
  Transmission Date: 20240715
  Serious: Yes (Other)
  Sender: FDA-Public Use
  Company Number: CA-BAYER-2024A067337

PATIENT

DRUGS (1)
  1. CIPRO [Suspect]
     Active Substance: CIPROFLOXACIN\CIPROFLOXACIN HYDROCHLORIDE
     Indication: Prostatitis
     Dosage: 1 DF, BID
     Route: 048

REACTIONS (15)
  - Insomnia [None]
  - Anxiety [None]
  - Agitation [None]
  - Tremor [None]
  - Panic attack [None]
  - Negative thoughts [None]
  - Intrusive thoughts [None]
  - Mania [None]
  - Phobia [None]
  - Diarrhoea [None]
  - Dehydration [None]
  - Malnutrition [None]
  - Muscular weakness [None]
  - Abdominal pain [None]
  - Vertigo [None]
